FAERS Safety Report 25820883 (Version 2)
Quarter: 2025Q3

REPORT INFORMATION
  Report Type: Spontaneous
  Country: EU (occurrence: EU)
  Receive Date: 20250919
  Receipt Date: 20250924
  Transmission Date: 20251021
  Serious: Yes (Other)
  Sender: AUROBINDO
  Company Number: EU-SERVIER-S25012897

PATIENT
  Age: 68 Year
  Sex: Male

DRUGS (4)
  1. OXALIPLATIN [Suspect]
     Active Substance: OXALIPLATIN
     Indication: Ductal adenocarcinoma of pancreas
     Route: 065
     Dates: start: 2024, end: 202502
  2. LEUCOVORIN [Suspect]
     Active Substance: LEUCOVORIN\LEUCOVORIN CALCIUM
     Indication: Ductal adenocarcinoma of pancreas
     Route: 065
     Dates: start: 2024, end: 202504
  3. ONIVYDE [Suspect]
     Active Substance: IRINOTECAN HYDROCHLORIDE
     Indication: Ductal adenocarcinoma of pancreas
     Route: 065
     Dates: start: 2024, end: 202504
  4. FLUOROURACIL [Suspect]
     Active Substance: FLUOROURACIL
     Indication: Ductal adenocarcinoma of pancreas
     Route: 065
     Dates: start: 2024, end: 202506

REACTIONS (2)
  - Malignant neoplasm progression [Unknown]
  - Polyneuropathy [Unknown]

NARRATIVE: CASE EVENT DATE: 20250101
